FAERS Safety Report 6460779-4 (Version None)
Quarter: 2009Q4

REPORT INFORMATION
  Report Type: 
  Country: None (occurrence: None)
  Receive Date: 20091130
  Receipt Date: 20091118
  Transmission Date: 20100525
  Serious: Yes (Hospitalization)
  Sender: FDA-Public Use
  Company Number: RS-ELI_LILLY_AND_COMPANY-RS200911004974

PATIENT
  Sex: Male
  Weight: 80 kg

DRUGS (13)
  1. PRASUGREL HYDROCHLORIDE [Suspect]
     Indication: ACUTE CORONARY SYNDROME
     Route: 048
     Dates: start: 20090504, end: 20091115
  2. PRASUGREL HYDROCHLORIDE [Suspect]
     Route: 050
     Dates: start: 20091118
  3. ASPIRIN [Concomitant]
     Dates: start: 20060101, end: 20090505
  4. ASPIRIN [Concomitant]
     Dates: start: 20090505
  5. RAMIPRIL [Concomitant]
     Indication: HYPERTENSION
     Dosage: UNK, UNK
     Dates: start: 20070928
  6. SIMVASTATIN [Concomitant]
     Indication: HYPERLIPIDAEMIA
     Dates: start: 20070928
  7. AMIODARONE HCL [Concomitant]
     Dates: start: 20090427
  8. PREDUCTAL MR [Concomitant]
     Indication: ANGINA PECTORIS
     Dates: start: 20090429
  9. ISOSORBID MONONITRATE [Concomitant]
     Indication: ANGINA PECTORIS
     Dates: start: 20090429
  10. FUROSEMIDE [Concomitant]
     Indication: LEFT VENTRICULAR DYSFUNCTION
     Dates: start: 20060101
  11. SPIRONOLACTONE [Concomitant]
     Indication: LEFT VENTRICULAR DYSFUNCTION
     Dates: start: 20090101
  12. CARVEDILOL [Concomitant]
     Indication: HYPERTENSION
     Dates: start: 20090605
  13. MOLSIDOMIN [Concomitant]
     Indication: ANGINA PECTORIS
     Dates: start: 20090605

REACTIONS (1)
  - ABDOMINAL PAIN [None]
